FAERS Safety Report 4761291-0 (Version None)
Quarter: 2005Q3

REPORT INFORMATION
  Report Type: 
  Country: None (occurrence: None)
  Receive Date: 20050830
  Receipt Date: 20050509
  Transmission Date: 20060218
  Serious: No
  Sender: FDA-Public Use
  Company Number: FABR-11104

PATIENT
  Age: 55 Year
  Sex: Male
  Weight: 112.3106 kg

DRUGS (10)
  1. FABRAZYME [Suspect]
     Indication: FABRY'S DISEASE
     Dosage: 110 MG Q2WKS IV
     Route: 042
     Dates: start: 20050114
  2. COUMADIN [Concomitant]
  3. ZOLOFT [Concomitant]
  4. POTASSIUM CHLORIDE [Concomitant]
  5. HYZAAR [Concomitant]
  6. ENALAPRIL [Concomitant]
  7. ANTIVERT [Concomitant]
  8. NITROGLYCERIN [Concomitant]
  9. TYLENOL [Concomitant]
  10. ANTIHISTAMINE [Concomitant]

REACTIONS (3)
  - BODY TEMPERATURE INCREASED [None]
  - CHILLS [None]
  - INJECTION SITE IRRITATION [None]
